FAERS Safety Report 5840442-0 (Version None)
Quarter: 2008Q3

REPORT INFORMATION
  Report Type: 
  Country: None (occurrence: None)
  Receive Date: 20080807
  Receipt Date: 20080807
  Transmission Date: 20090109
  Serious: Yes (Hospitalization)
  Sender: FDA-Public Use
  Company Number: None

PATIENT
  Age: 71 Year
  Sex: Male
  Weight: 73.3 kg

DRUGS (2)
  1. BACLOFEN [Suspect]
     Indication: MUSCLE SPASMS
     Dosage: 10 MG TID PO
     Route: 048
     Dates: start: 20071218, end: 20080801
  2. SERTRALINE [Suspect]
     Indication: DEPRESSION
     Dosage: 150 MG EVERY DAY PO
     Route: 048
     Dates: start: 20080507

REACTIONS (1)
  - MENTAL STATUS CHANGES [None]
